FAERS Safety Report 18310557 (Version 1)
Quarter: 2020Q3

REPORT INFORMATION
  Report Type: Report from Study
  Country: US (occurrence: US)
  Receive Date: 20200925
  Receipt Date: 20200925
  Transmission Date: 20201103
  Serious: Yes (Other)
  Sender: FDA-Public Use
  Company Number: US-AMGEN-USASL2020152532

PATIENT
  Age: 72 Year
  Sex: Female

DRUGS (1)
  1. PROLIA [Suspect]
     Active Substance: DENOSUMAB
     Indication: OSTEOPENIA
     Dosage: UNK
     Route: 065
     Dates: start: 201904

REACTIONS (15)
  - Pain in jaw [Unknown]
  - Tooth disorder [Unknown]
  - Eczema [Unknown]
  - Gingivitis [Unknown]
  - Chest pain [Unknown]
  - Off label use [Unknown]
  - Arthralgia [Unknown]
  - Influenza like illness [Recovered/Resolved]
  - Heart rate increased [Unknown]
  - Myalgia [Unknown]
  - Vertigo [Unknown]
  - Bone loss [Unknown]
  - Confusional state [Unknown]
  - Fatigue [Unknown]
  - Bone pain [Unknown]

NARRATIVE: CASE EVENT DATE: 2019
